FAERS Safety Report 23223587 (Version 5)
Quarter: 2024Q4

REPORT INFORMATION
  Report Type: Spontaneous
  Country: CA (occurrence: CA)
  Receive Date: 20231124
  Receipt Date: 20241214
  Transmission Date: 20250114
  Serious: Yes (Hospitalization, Other)
  Sender: UNITED THERAPEUTICS
  Company Number: CA-UNITED THERAPEUTICS-UNT-2023-033177

PATIENT
  Age: 41 Year
  Sex: Female

DRUGS (11)
  1. REMODULIN [Suspect]
     Active Substance: TREPROSTINIL
     Indication: Pulmonary arterial hypertension
     Dosage: 0.178 ?G/KG, CONTINUING
     Route: 041
  2. REMODULIN [Suspect]
     Active Substance: TREPROSTINIL
     Dosage: UNK (DECREASED DOSE), CONTINUING
     Route: 041
  3. REMODULIN [Suspect]
     Active Substance: TREPROSTINIL
     Dosage: UNK (RATE OF 1.5 ML/HR), CONTINUING
     Route: 041
  4. REMODULIN [Suspect]
     Active Substance: TREPROSTINIL
     Dosage: UNK (RATE OF 1.1 ML/HR), CONTINUING
     Route: 041
  5. REMODULIN [Suspect]
     Active Substance: TREPROSTINIL
     Dosage: UNK, CONTINUING
     Route: 041
  6. OZEMPIC [Suspect]
     Active Substance: SEMAGLUTIDE
     Indication: Weight decreased
     Dosage: UNK
  7. SOTATERCEPT [Concomitant]
     Active Substance: SOTATERCEPT
     Indication: Pulmonary arterial hypertension
     Dosage: UNK (FIRST DOSE)
  8. SOTATERCEPT [Concomitant]
     Active Substance: SOTATERCEPT
     Dosage: UNK (SECOND DOSE)
  9. SOTATERCEPT [Concomitant]
     Active Substance: SOTATERCEPT
     Dosage: UNK (THIRD DOSE)
  10. UPTRAVI [Concomitant]
     Active Substance: SELEXIPAG
     Indication: Pulmonary arterial hypertension
     Dosage: 200 MCG, UNK
  11. EPOPROSTENOL [Concomitant]
     Active Substance: EPOPROSTENOL
     Indication: Product used for unknown indication
     Dosage: UNK

REACTIONS (12)
  - Vascular device infection [Not Recovered/Not Resolved]
  - Staphylococcal infection [Unknown]
  - Pseudomonas infection [Unknown]
  - Catheter site thrombosis [Unknown]
  - Subclavian vein stenosis [Unknown]
  - Endocarditis [Unknown]
  - Exposure to fungus [Unknown]
  - Scar [Unknown]
  - Weight increased [Recovered/Resolved]
  - Weight decreased [Unknown]
  - Dyspnoea [Unknown]
  - Injection site scar [Unknown]

NARRATIVE: CASE EVENT DATE: 20240830
